FAERS Safety Report 8014275-3 (Version None)
Quarter: 2011Q4

REPORT INFORMATION
  Report Type: 
  Country: None (occurrence: None)
  Receive Date: 20111229
  Receipt Date: 20111221
  Transmission Date: 20120403
  Serious: Yes (Other)
  Sender: FDA-Public Use
  Company Number: JP-GLAXOSMITHKLINE-B0770898A

PATIENT
  Age: 79 Year
  Sex: Male

DRUGS (1)
  1. FLUTICASONE PROPIONATE/SALMETEROL [Suspect]
     Indication: PRODUCTIVE COUGH
     Route: 055

REACTIONS (3)
  - HEADACHE [None]
  - EYE PAIN [None]
  - LARYNGEAL HAEMORRHAGE [None]
